FAERS Safety Report 6998225-4 (Version None)
Quarter: 2010Q3

REPORT INFORMATION
  Report Type: 
  Country: None (occurrence: None)
  Receive Date: 20100920
  Receipt Date: 20100602
  Transmission Date: 20110219
  Serious: No
  Sender: FDA-Public Use
  Company Number: US-ASTRAZENECA-2009UW19095

PATIENT
  Age: 35 Year
  Sex: Female
  Weight: 83.5 kg

DRUGS (16)
  1. SEROQUEL [Suspect]
     Indication: BIPOLAR DISORDER
     Route: 048
     Dates: start: 20080211
  2. SEROQUEL [Suspect]
     Route: 048
  3. CLOZARIL [Concomitant]
  4. CLONAZEPAM [Concomitant]
     Dates: start: 20061024
  5. LIBRAX [Concomitant]
     Dosage: 5MG-2.5MG 1 CAPS TID
     Dates: start: 20061024
  6. PREVACID [Concomitant]
     Dates: start: 20061024
  7. ZOLOFT [Concomitant]
     Dates: start: 20061024
  8. GABAPENTIN [Concomitant]
     Dates: start: 20061024
  9. IMITREX [Concomitant]
     Dates: start: 20061024
  10. DARVOCET-N 100 [Concomitant]
     Dates: start: 20061024
  11. NABUMETONE [Concomitant]
     Dates: start: 20061024
  12. ULTRACET [Concomitant]
     Dates: start: 20061024
  13. XANAX [Concomitant]
  14. DEPAKOTE [Concomitant]
  15. FLEXERIL [Concomitant]
  16. VALPROIC ACID [Concomitant]

REACTIONS (6)
  - BACK INJURY [None]
  - BACK PAIN [None]
  - FIBROMYALGIA [None]
  - LUMBAR SPINAL STENOSIS [None]
  - OEDEMA PERIPHERAL [None]
  - TYPE 2 DIABETES MELLITUS [None]
